FAERS Safety Report 5256004-2 (Version None)
Quarter: 2007Q1

REPORT INFORMATION
  Report Type: 
  Country: None (occurrence: None)
  Receive Date: 20070301
  Receipt Date: 20070215
  Transmission Date: 20070707
  Serious: Yes (Death, Life-Threatening, Hospitalization)
  Sender: FDA-Public Use
  Company Number: FABR-11621

PATIENT
  Age: 53 Year
  Sex: Male
  Weight: 70 kg

DRUGS (5)
  1. FABRAZYME [Suspect]
     Indication: FABRY'S DISEASE
     Dosage: 70 MG Q2WKS IV
     Route: 042
     Dates: end: 20060902
  2. METOPROLOL SUCCINATE [Concomitant]
  3. CALCIUM [Concomitant]
  4. OMEPRAZOLE [Concomitant]
  5. EPOGEN [Concomitant]

REACTIONS (10)
  - APHAGIA [None]
  - CARDIO-RESPIRATORY ARREST [None]
  - CATHETER RELATED INFECTION [None]
  - CEREBRAL ISCHAEMIA [None]
  - DIALYSIS DEVICE COMPLICATION [None]
  - INFUSION SITE INFECTION [None]
  - LOSS OF CONSCIOUSNESS [None]
  - PERITONITIS [None]
  - SEPSIS [None]
  - SKIN INFECTION [None]
